FAERS Safety Report 9773384 (Version 1)
Quarter: 2013Q4

REPORT INFORMATION
  Report Type: Spontaneous
  Country: US (occurrence: US)
  Receive Date: 20131219
  Receipt Date: 20131219
  Transmission Date: 20140711
  Serious: No
  Sender: FDA-Public Use
  Company Number: PHEH2013US025660

PATIENT
  Sex: Female

DRUGS (4)
  1. TASIGNA [Suspect]
     Route: 048
     Dates: start: 20131207
  2. SIMVASTATIN [Concomitant]
  3. AMLODIPINE BENAZEPRIL [Concomitant]
  4. METOPROLOL [Concomitant]

REACTIONS (3)
  - Dizziness [Unknown]
  - Nausea [Unknown]
  - Pyrexia [Unknown]
